FAERS Safety Report 6808789-9 (Version None)
Quarter: 2010Q2

REPORT INFORMATION
  Report Type: 
  Country: None (occurrence: None)
  Receive Date: 20100630
  Receipt Date: 20090923
  Transmission Date: 20101027
  Serious: No
  Sender: FDA-Public Use
  Company Number: US-PFIZER INC-2009255160

PATIENT
  Sex: Female

DRUGS (1)
  1. MEDROL [Suspect]
     Dosage: UNK
     Dates: start: 20090811

REACTIONS (1)
  - JOINT CREPITATION [None]
